FAERS Safety Report 7937126-1 (Version None)
Quarter: 2011Q4

REPORT INFORMATION
  Report Type: 
  Country: None (occurrence: None)
  Receive Date: 20111123
  Receipt Date: 20111114
  Transmission Date: 20120403
  Serious: Yes (Hospitalization)
  Sender: FDA-Public Use
  Company Number: US-BAYER-201039585NA

PATIENT
  Age: 41 Year
  Sex: Female

DRUGS (3)
  1. BENICAR HCT [Concomitant]
     Route: 048
  2. YAZ [Suspect]
     Indication: PRODUCT USED FOR UNKNOWN INDICATION
     Dates: start: 20070501, end: 20070601
  3. VERAPAMIL [Concomitant]
     Dosage: 240 MG, UNK
     Route: 048
     Dates: start: 19970101

REACTIONS (1)
  - PULMONARY EMBOLISM [None]
